FAERS Safety Report 5007080-3 (Version None)
Quarter: 2006Q1

REPORT INFORMATION
  Report Type: 
  Country: None (occurrence: None)
  Receive Date: 20060330
  Receipt Date: 20060301
  Transmission Date: 20060701
  Serious: Yes (Other)
  Sender: FDA-Public Use
  Company Number: 2006031855

PATIENT

DRUGS (1)
  1. ZMAX [Suspect]
     Indication: PNEUMONIA

REACTIONS (1)
  - HEPATOCELLULAR DAMAGE [None]
